FAERS Safety Report 4505427-5 (Version None)
Quarter: 2004Q4

REPORT INFORMATION
  Report Type: 
  Country: None (occurrence: None)
  Receive Date: 20041018
  Receipt Date: 20040914
  Transmission Date: 20050328
  Serious: Yes (Other)
  Sender: FDA-Public Use
  Company Number: 207885

PATIENT
  Age: 57 Year
  Sex: Female
  Weight: 68 kg

DRUGS (17)
  1. XOLAIR [Suspect]
     Indication: ASTHMA
     Dosage: 150 MG Q4W, SUBCUTANEOUS
     Route: 058
     Dates: start: 20030901, end: 20040429
  2. ADVAIR DISKUS (FLUTICASONE PROPIONATE, SALMETEROL XINAFOATE) [Concomitant]
  3. SALBUTAMOL/IPRATROPIUM (ALBUTEROL, ALBUTEROL SULFATE, IPRATROPIUM BROM [Concomitant]
  4. ASPIRIN [Concomitant]
  5. ATIVAN [Concomitant]
  6. CALCIUM (CALCIUM NOS) [Concomitant]
  7. CENTRUM SILVER (MINERALS NOS MULTIVITAMINS NOS) [Concomitant]
  8. COMBIVENT (IPRATROPIUM BROMIDE, ALBUTEROL SULFATE, ALBUTEROL) [Concomitant]
  9. EVISTA [Concomitant]
  10. VITAMIN E [Concomitant]
  11. LEXAPRO [Concomitant]
  12. NORTRIPTYLINE HCL (NORTRIOPTYLINE HYDROCHLORIDE) [Concomitant]
  13. PROTONIX [Concomitant]
  14. RANITIDINE [Concomitant]
  15. SINGULAR (MONTELUKAST SODIUM) [Concomitant]
  16. TIAZAC [Concomitant]
  17. ZYRTEC [Concomitant]

REACTIONS (1)
  - SMALL CELL LUNG CANCER STAGE UNSPECIFIED [None]
